FAERS Safety Report 25439753 (Version 2)
Quarter: 2025Q2

REPORT INFORMATION
  Report Type: Spontaneous
  Country: US (occurrence: US)
  Receive Date: 20250616
  Receipt Date: 20250620
  Transmission Date: 20250716
  Serious: No
  Sender: TRIS PHARMA, INC.
  Company Number: US-TRIS PHARMA, INC.-25US012012

PATIENT

DRUGS (4)
  1. DYANAVEL XR [Suspect]
     Active Substance: AMPHETAMINE
     Indication: Attention deficit hyperactivity disorder
     Dosage: 15 MILLIGRAM, QD
     Dates: start: 20250318
  2. DYANAVEL XR [Suspect]
     Active Substance: AMPHETAMINE
     Dosage: 10 MILLIGRAM, QD
     Dates: start: 20240701
  3. DYANAVEL XR [Suspect]
     Active Substance: AMPHETAMINE
     Dosage: 12.5 MILLIGRAM, QD
     Dates: start: 20240826
  4. DYANAVEL XR [Suspect]
     Active Substance: AMPHETAMINE
     Dosage: 15 MILLIGRAM, QD (5MG AND 10 MG TABLET)
     Dates: start: 20250107

REACTIONS (2)
  - Off label use [Unknown]
  - Rash [Unknown]

NARRATIVE: CASE EVENT DATE: 20250612
